FAERS Safety Report 11400481 (Version 2)
Quarter: 2015Q4

REPORT INFORMATION
  Report Type: Spontaneous
  Country: US (occurrence: US)
  Receive Date: 20150820
  Receipt Date: 20151105
  Transmission Date: 20160304
  Serious: No
  Sender: FDA-Public Use
  Company Number: US-PFIZER INC-2015274195

PATIENT
  Age: 74 Year
  Sex: Female
  Weight: 70 kg

DRUGS (5)
  1. PREMARIN [Suspect]
     Active Substance: ESTROGENS, CONJUGATED
     Dosage: 1.25 MG, 1X/DAY
  2. CLARITIN [Concomitant]
     Active Substance: LORATADINE
     Indication: HYPERSENSITIVITY
     Dosage: 10 MG, 1X/DAY
  3. METHOCARBAMOL. [Suspect]
     Active Substance: METHOCARBAMOL
     Indication: MUSCLE SPASMS
     Dosage: 750 MG, 2X/DAY
  4. PREMARIN [Suspect]
     Active Substance: ESTROGENS, CONJUGATED
     Indication: HORMONE REPLACEMENT THERAPY
     Dosage: LOWEST DOSAGE
     Dates: start: 1981
  5. DILTIAZEM [Concomitant]
     Active Substance: DILTIAZEM
     Indication: BLOOD PRESSURE ABNORMAL
     Dosage: 180 MG, 1X/DAY

REACTIONS (6)
  - Pain [Unknown]
  - Insomnia [Unknown]
  - Stress [Unknown]
  - Somnolence [Unknown]
  - Drug ineffective [Unknown]
  - Muscle spasms [Not Recovered/Not Resolved]
